FAERS Safety Report 4924269-X (Version None)
Quarter: 2006Q1

REPORT INFORMATION
  Report Type: 
  Country: None (occurrence: None)
  Receive Date: 20060221
  Receipt Date: 20060213
  Transmission Date: 20060701
  Serious: Yes (Other)
  Sender: FDA-Public Use
  Company Number: S06-USA-00518-01

PATIENT
  Age: 54 Year
  Sex: Female

DRUGS (2)
  1. LEXAPRO [Suspect]
     Indication: DEPRESSION
     Dosage: 10 MG QD PO
     Route: 048
     Dates: start: 20060113
  2. ASPIRIN [Concomitant]

REACTIONS (6)
  - ABNORMAL DREAMS [None]
  - ADJUSTMENT DISORDER [None]
  - APATHY [None]
  - DISTURBANCE IN ATTENTION [None]
  - EMOTIONAL DISORDER [None]
  - SPEECH DISORDER [None]
